FAERS Safety Report 20144050 (Version 1)
Quarter: 2021Q4

REPORT INFORMATION
  Report Type: Spontaneous
  Country: AT (occurrence: AT)
  Receive Date: 20211203
  Receipt Date: 20211203
  Transmission Date: 20220303
  Serious: Yes (Other)
  Sender: FDA-Public Use
  Company Number: None

PATIENT
  Age: 54 Year
  Sex: Male
  Weight: 75 kg

DRUGS (4)
  1. CUBICIN [Suspect]
     Active Substance: DAPTOMYCIN
     Indication: Bacterial sepsis
     Dosage: 500MG EVERY 48H, POWDER FOR RECONSTITUTION OF INJECTION SOLUTION
     Dates: start: 20210827, end: 20210909
  2. CURAM [AMOXICILLIN;CLAVULANIC ACID] [Concomitant]
     Dosage: UNK
     Dates: start: 20210826, end: 20210901
  3. PIPERACILLIN SODIUM\TAZOBACTAM SODIUM [Concomitant]
     Active Substance: PIPERACILLIN SODIUM\TAZOBACTAM SODIUM
     Dosage: UNK
     Dates: start: 20210902, end: 20210903
  4. MEROPENEM [Concomitant]
     Active Substance: MEROPENEM
     Indication: Bacterial sepsis
     Dosage: 3X2G, POWDER FOR RECONSTITUTION OF INJECTION SOLUTION
     Dates: start: 20210902

REACTIONS (2)
  - Thrombocytopenia [Recovered/Resolved]
  - Leukopenia [Recovered/Resolved]

NARRATIVE: CASE EVENT DATE: 20210906
